FAERS Safety Report 9149843 (Version 1)
Quarter: 2013Q1

REPORT INFORMATION
  Report Type: Spontaneous
  Country: US (occurrence: US)
  Receive Date: 20130308
  Receipt Date: 20130308
  Transmission Date: 20140127
  Serious: No
  Sender: FDA-Public Use
  Company Number: US-ENDO PHARMACEUTICALS INC.-OPCR20120661

PATIENT
  Age: 53 Year
  Sex: Female

DRUGS (2)
  1. OPANA ER 20MG [Suspect]
     Indication: PRODUCT USED FOR UNKNOWN INDICATION
     Route: 048
     Dates: start: 201204, end: 201204
  2. OPANA ER 20MG [Concomitant]
     Dates: end: 201204

REACTIONS (2)
  - Chest pain [Recovered/Resolved]
  - Drug effect delayed [Recovered/Resolved]
